FAERS Safety Report 8729440 (Version 3)
Quarter: 2012Q4

REPORT INFORMATION
  Report Type: Report from Study
  Country: US (occurrence: US)
  Receive Date: 20120817
  Receipt Date: 20121121
  Transmission Date: 20130627
  Serious: Yes (Hospitalization)
  Sender: FDA-Public Use
  Company Number: US-JNJFOC-20120806583

PATIENT
  Age: 15 Year
  Sex: Female
  Weight: 52.3 kg

DRUGS (3)
  1. REMICADE [Suspect]
     Indication: INFLAMMATORY BOWEL DISEASE
     Route: 042
     Dates: start: 20100626, end: 20120322
  2. PREDNISONE [Concomitant]
  3. 5-ASA [Concomitant]
     Route: 048

REACTIONS (1)
  - Pancreatitis [Recovered/Resolved]
